FAERS Safety Report 9851936 (Version 2)
Quarter: 2014Q1

REPORT INFORMATION
  Report Type: Spontaneous
  Country: BE (occurrence: BE)
  Receive Date: 20140129
  Receipt Date: 20140129
  Transmission Date: 20141002
  Serious: Yes (Other)
  Sender: FDA-Public Use
  Company Number: BE-BEH-2013038833

PATIENT
  Age: 29 Year
  Sex: Male

DRUGS (1)
  1. HIZENTRA [Suspect]
     Dosage: 30 ML (6 G); FREQUENCY NOT MENTIONED
     Route: 058
     Dates: start: 20130610

REACTIONS (3)
  - Mental impairment [Unknown]
  - Feeling abnormal [Unknown]
  - Injection site scar [Unknown]
